FAERS Safety Report 17832126 (Version 1)
Quarter: 2020Q2

REPORT INFORMATION
  Report Type: Spontaneous
  Country: JP (occurrence: JP)
  Receive Date: 20200528
  Receipt Date: 20200528
  Transmission Date: 20200714
  Serious: Yes (Other)
  Sender: FDA-Public Use
  Company Number: JP-UCBSA-2020021401

PATIENT
  Age: 10 Year
  Sex: Female
  Weight: 30 kg

DRUGS (1)
  1. E KEPPRA [Suspect]
     Active Substance: LEVETIRACETAM
     Indication: EPILEPSY
     Dosage: 250 MILLIGRAM, 2X/DAY (BID)
     Route: 048

REACTIONS (4)
  - Agitation [Unknown]
  - Epilepsy [Unknown]
  - Treatment noncompliance [Unknown]
  - Rash [Unknown]
